FAERS Safety Report 8625568-0 (Version None)
Quarter: 2012Q3

REPORT INFORMATION
  Report Type: 
  Country: None (occurrence: None)
  Receive Date: 20120827
  Receipt Date: 20120813
  Transmission Date: 20120928
  Serious: Yes (Other)
  Sender: FDA-Public Use
  Company Number: IT-MYLANLABS-2012S1016804

PATIENT
  Age: 33 Day
  Sex: Female

DRUGS (3)
  1. PROPRANOLOL [Suspect]
     Indication: HAEMANGIOMA CONGENITAL
     Dosage: 2 MG/KG/DAY IN 4 DIVIDED DOSES
     Route: 048
  2. RANITIDINE [Concomitant]
     Indication: GASTROOESOPHAGEAL REFLUX DISEASE
     Route: 065
  3. DOMPERIDONE [Concomitant]
     Indication: GASTROOESOPHAGEAL REFLUX DISEASE
     Route: 065

REACTIONS (1)
  - TUMOUR LYSIS SYNDROME [None]
